FAERS Safety Report 9831018 (Version 1)
Quarter: 2014Q1

REPORT INFORMATION
  Report Type: Report from Study
  Country: BR (occurrence: BR)
  Receive Date: 20140120
  Receipt Date: 20140120
  Transmission Date: 20141002
  Serious: Yes (Death, Hospitalization, Other)
  Sender: FDA-Public Use
  Company Number: PHHY2014BR005870

PATIENT
  Sex: Female

DRUGS (4)
  1. GALVUS [Suspect]
     Dosage: 50 MG, UNK
  2. DIOVAN [Suspect]
     Dosage: UNK UKN, UNK
  3. DIOVAN AMLO FIX [Suspect]
     Dosage: UNK UKN, UNK
  4. DIOVAN AMLO FIX [Suspect]
     Dosage: 1 DF (320MG VALS / 5MG AMLO) , UNK

REACTIONS (2)
  - Death [Fatal]
  - Cerebrovascular accident [Unknown]
